FAERS Safety Report 16501485 (Version 1)
Quarter: 2019Q3

REPORT INFORMATION
  Report Type: Spontaneous
  Country: CZ (occurrence: CZ)
  Receive Date: 20190701
  Receipt Date: 20190701
  Transmission Date: 20191004
  Serious: Yes (Other)
  Sender: FDA-Public Use
  Company Number: CZ-PFIZER INC-2019277283

PATIENT
  Sex: Male

DRUGS (2)
  1. MEROPENEM. [Suspect]
     Active Substance: MEROPENEM
     Indication: SEPSIS
     Dosage: UNK
     Route: 065
  2. VANCOMYCIN [Suspect]
     Active Substance: VANCOMYCIN
     Indication: SEPSIS
     Dosage: UNK
     Route: 065

REACTIONS (4)
  - Disease recurrence [Unknown]
  - Hypoperfusion [Unknown]
  - Gastrointestinal disorder [Unknown]
  - Clostridium colitis [Unknown]

NARRATIVE: CASE EVENT DATE: 2018
